FAERS Safety Report 14573994 (Version 1)
Quarter: 2018Q1

REPORT INFORMATION
  Report Type: Spontaneous
  Country: FR (occurrence: FR)
  Receive Date: 20180226
  Receipt Date: 20180226
  Transmission Date: 20180509
  Serious: Yes (Hospitalization, Other)
  Sender: FDA-Public Use
  Company Number: FR-PFIZER INC-2018076185

PATIENT
  Age: 49 Year
  Sex: Female

DRUGS (6)
  1. SUBUTEX [Suspect]
     Active Substance: BUPRENORPHINE HYDROCHLORIDE
     Dosage: UNK
     Route: 045
     Dates: end: 20130101
  2. LSD 25 [Suspect]
     Active Substance: LYSERGIDE
     Dosage: UNK
     Dates: start: 19970101, end: 19970101
  3. CANNABIS AND OIL [Suspect]
     Active Substance: CANNABIS SATIVA SEED OIL
     Dosage: UNK
     Route: 055
     Dates: end: 19970101
  4. XANAX [Suspect]
     Active Substance: ALPRAZOLAM
     Dosage: 6 DF, 1X/DAY
     Route: 048
  5. COCAINE [Suspect]
     Active Substance: COCAINE
     Dosage: UNK
     Dates: end: 20170801
  6. HEROIN [Suspect]
     Active Substance: DIAMORPHINE
     Dosage: UNK
     Dates: start: 19970101, end: 19970101

REACTIONS (9)
  - Drug dependence [Recovered/Resolved]
  - Withdrawal syndrome [Recovered/Resolved]
  - Drug dependence [Recovering/Resolving]
  - Pancreatitis acute [Unknown]
  - Drug abuse [Recovered/Resolved]
  - Hallucination [Unknown]
  - Drug abuse [Recovered/Resolved]
  - Seizure [Recovered/Resolved]
  - Pneumonia [Unknown]

NARRATIVE: CASE EVENT DATE: 19970101
